FAERS Safety Report 22643720 (Version 1)
Quarter: 2023Q2

REPORT INFORMATION
  Report Type: Spontaneous
  Country: GB (occurrence: GB)
  Receive Date: 20230627
  Receipt Date: 20230627
  Transmission Date: 20230722
  Serious: Yes (Life-Threatening, Hospitalization, Disabling, Other)
  Sender: FDA-Public Use
  Company Number: None

PATIENT
  Age: 31 Year
  Sex: Female
  Weight: 63.5 kg

DRUGS (122)
  1. PAROXETINE [Suspect]
     Active Substance: PAROXETINE
     Indication: Post-traumatic stress disorder
     Dosage: 20 MG, 3 TIMES PER DAY
     Route: 048
     Dates: start: 1997, end: 201105
  2. PAROXETINE [Suspect]
     Active Substance: PAROXETINE
     Indication: Depression
     Dosage: 40 MG, ONCE PER DAY
     Route: 048
     Dates: start: 19990801, end: 20110706
  3. PAROXETINE [Suspect]
     Active Substance: PAROXETINE
     Dosage: 20 MG, ONCE PER DAY
     Route: 048
     Dates: start: 201105, end: 20110706
  4. PAROXETINE [Suspect]
     Active Substance: PAROXETINE
     Dosage: UNK,  UNK
     Route: 048
     Dates: start: 1996
  5. PAROXETINE [Suspect]
     Active Substance: PAROXETINE
     Dosage: 60 MG, ONCE PER DAY
     Route: 048
     Dates: start: 19990801, end: 201105
  6. PAROXETINE [Suspect]
     Active Substance: PAROXETINE
     Dosage: UNK,  UNK
     Dates: start: 201012
  7. PAROXETINE [Suspect]
     Active Substance: PAROXETINE
     Dosage: UNK,  UNK
     Route: 048
     Dates: start: 1996, end: 201105
  8. PAROXETINE [Suspect]
     Active Substance: PAROXETINE
     Dosage: 20 MG, 3 TIMES PER DAY
     Route: 048
     Dates: start: 199908, end: 201105
  9. PAROXETINE [Suspect]
     Active Substance: PAROXETINE
     Dosage: UNK,  UNK
  10. PAROXETINE [Suspect]
     Active Substance: PAROXETINE
     Dosage: 40 MG,UNK
     Route: 048
     Dates: start: 201105, end: 20110706
  11. PAROXETINE [Suspect]
     Active Substance: PAROXETINE
     Dosage: 60 MG, ONCE PER DAY
     Route: 048
     Dates: start: 1997, end: 201105
  12. PAROXETINE [Suspect]
     Active Substance: PAROXETINE
     Dosage: 60 MG, 3 TIMES PER DAY
     Route: 048
     Dates: start: 1997
  13. DIAZEPAM [Suspect]
     Active Substance: DIAZEPAM
     Indication: Muscle spasms
     Dosage: 5 MG, 4 TIMES PER DAY (20 MG, QD 5 MILLIGRAM, QID (5 MG QDS AND NOW)
     Route: 048
     Dates: start: 20110725
  14. DIAZEPAM [Suspect]
     Active Substance: DIAZEPAM
     Indication: Serotonin syndrome
     Dosage: 8 MG, 4 TIMES PER DAY
     Route: 048
     Dates: start: 20110725
  15. DIAZEPAM [Suspect]
     Active Substance: DIAZEPAM
     Indication: Depression
     Dosage: UNK,  UNK
  16. DIAZEPAM [Suspect]
     Active Substance: DIAZEPAM
     Dosage: 20 MG, ONCE PER DAY (20 MG, QD 5 MILLIGRAM, QID (5 MG QDS AND NOW ON 2-2-4 MG)
     Route: 048
     Dates: start: 20110725, end: 20110725
  17. DIAZEPAM [Suspect]
     Active Substance: DIAZEPAM
     Dosage: 8 MG, UNK (EVERY 24 HOURS)
     Route: 048
  18. DIAZEPAM [Suspect]
     Active Substance: DIAZEPAM
     Dosage: UNK,  UNK
     Dates: start: 20110725
  19. DIAZEPAM [Suspect]
     Active Substance: DIAZEPAM
     Dosage: 8 MG, ONCE PER DAY
     Route: 065
     Dates: start: 20110725
  20. LORAZEPAM [Suspect]
     Active Substance: LORAZEPAM
     Indication: Sedation
     Dosage: 4 MG, ONCE PER DAY
     Route: 048
     Dates: start: 20110202, end: 20110410
  21. LORAZEPAM [Suspect]
     Active Substance: LORAZEPAM
     Dosage: 4 MG, ONCE PER DAY
     Route: 048
     Dates: start: 20110523, end: 20110627
  22. LORAZEPAM [Suspect]
     Active Substance: LORAZEPAM
     Dosage: 1 MG, 4 TIMES PER DAY
     Route: 048
     Dates: start: 20110523, end: 20110627
  23. LORAZEPAM [Suspect]
     Active Substance: LORAZEPAM
     Dosage: 1 MG, 4 TIMES PER DAY
     Route: 048
     Dates: start: 20110224, end: 20110410
  24. LORAZEPAM [Suspect]
     Active Substance: LORAZEPAM
     Dosage: 1 MG
     Route: 048
     Dates: start: 20110224, end: 20110410
  25. LORAZEPAM [Suspect]
     Active Substance: LORAZEPAM
     Dosage: 1 MG, ONCE PER DAY
     Route: 048
     Dates: start: 20110725
  26. LORAZEPAM [Suspect]
     Active Substance: LORAZEPAM
     Dosage: 1 MG, 4 TIMES PER DAY
     Route: 048
     Dates: start: 20110224, end: 20110410
  27. LORAZEPAM [Suspect]
     Active Substance: LORAZEPAM
     Dosage: 1 MG, 4 TIMES PER DAY
     Route: 048
     Dates: start: 20110224, end: 20110410
  28. LORAZEPAM [Suspect]
     Active Substance: LORAZEPAM
     Dosage: 1 MG,  UNK
     Route: 048
     Dates: start: 20110725
  29. LORAZEPAM [Suspect]
     Active Substance: LORAZEPAM
     Dosage: 1 MG, 4 TIMES PER DAY
     Route: 048
     Dates: start: 20110224, end: 20110410
  30. LORAZEPAM [Suspect]
     Active Substance: LORAZEPAM
     Dosage: 1 MG, 4 TIMES PER DAY
     Route: 048
     Dates: start: 20110224, end: 20110410
  31. LORAZEPAM [Suspect]
     Active Substance: LORAZEPAM
     Dosage: 4 MG, 4 TIMES PER DAY
     Route: 048
     Dates: start: 20110224, end: 20110410
  32. LORAZEPAM [Suspect]
     Active Substance: LORAZEPAM
     Dosage: UNK,  UNK
     Route: 048
     Dates: start: 20110202, end: 20110410
  33. LORAZEPAM [Suspect]
     Active Substance: LORAZEPAM
     Dosage: 1 MG,  UNK,
     Route: 048
     Dates: start: 20110523, end: 20110627
  34. LORAZEPAM [Suspect]
     Active Substance: LORAZEPAM
     Dosage: 4 MG,  UNK
     Route: 048
     Dates: start: 20110224, end: 20110404
  35. LORAZEPAM [Suspect]
     Active Substance: LORAZEPAM
     Dosage: 1 MG, 4 TIMES PER DAY
     Route: 048
     Dates: start: 20110224, end: 20110410
  36. PROCYCLIDINE HYDROCHLORIDE [Suspect]
     Active Substance: PROCYCLIDINE HYDROCHLORIDE
     Indication: Extrapyramidal disorder
     Dosage: 20 MG, ONCE PER DAY
     Route: 048
     Dates: start: 20110324, end: 20110506
  37. PROCYCLIDINE HYDROCHLORIDE [Suspect]
     Active Substance: PROCYCLIDINE HYDROCHLORIDE
     Indication: Oculogyric crisis
     Dosage: UNK,  UNK
     Route: 065
     Dates: start: 20110415
  38. PROCYCLIDINE HYDROCHLORIDE [Suspect]
     Active Substance: PROCYCLIDINE HYDROCHLORIDE
     Indication: Extrapyramidal disorder
     Dosage: 15 MG, ONCE PER DAY (15 MG, QD, 5MG, TID)
     Route: 048
     Dates: start: 20110503, end: 20110510
  39. PROCYCLIDINE HYDROCHLORIDE [Suspect]
     Active Substance: PROCYCLIDINE HYDROCHLORIDE
     Dosage: 5 MG, ONCE PER DAY
     Route: 048
     Dates: start: 20110503, end: 20110510
  40. PROCYCLIDINE HYDROCHLORIDE [Suspect]
     Active Substance: PROCYCLIDINE HYDROCHLORIDE
     Dosage: 5 MG, ONCE PER DAY
     Route: 048
     Dates: start: 1995, end: 1996
  41. PROCYCLIDINE HYDROCHLORIDE [Suspect]
     Active Substance: PROCYCLIDINE HYDROCHLORIDE
     Dosage: 5 MG, ONCE PER DAY
     Route: 048
     Dates: start: 1995, end: 1995
  42. PROCYCLIDINE HYDROCHLORIDE [Suspect]
     Active Substance: PROCYCLIDINE HYDROCHLORIDE
     Dosage: 20 MG,  UNK, 1ST TRIMESTER
     Route: 048
     Dates: start: 20110415
  43. PROCYCLIDINE HYDROCHLORIDE [Suspect]
     Active Substance: PROCYCLIDINE HYDROCHLORIDE
     Dosage: 15 MG, ONCE PER DAY (15 MG, QD, 5MG, TID)
     Route: 048
     Dates: start: 20110503, end: 20110510
  44. PROCYCLIDINE HYDROCHLORIDE [Suspect]
     Active Substance: PROCYCLIDINE HYDROCHLORIDE
     Dosage: UNK,UNK
     Route: 065
     Dates: start: 20110415
  45. TRAMADOL [Suspect]
     Active Substance: TRAMADOL
     Indication: Analgesic therapy
     Dosage: 5 MG,  UNK
     Route: 044
     Dates: start: 1995, end: 1996
  46. TRAMADOL [Suspect]
     Active Substance: TRAMADOL
     Indication: Neck pain
     Dosage: UNK,  UNK (4 CYCLICAL, QD)
     Route: 048
     Dates: start: 20080722
  47. TRAMADOL [Suspect]
     Active Substance: TRAMADOL
     Indication: Back pain
     Dosage: 4 MG, ONCE PER DAY( (4 CYCLICAL, QD 50-100 MG QD)
     Route: 048
     Dates: start: 20081201, end: 20101210
  48. TRAMADOL [Suspect]
     Active Substance: TRAMADOL
     Indication: Oculogyric crisis
     Dosage: UNK,  UNK (4 OT, QD)
     Route: 048
     Dates: start: 20080722
  49. TRAMADOL [Suspect]
     Active Substance: TRAMADOL
     Dosage: UNK,  UNK
     Route: 048
     Dates: start: 20081201, end: 20101210
  50. TRAMADOL [Suspect]
     Active Substance: TRAMADOL
     Dosage: UNK,  UNK
     Dates: start: 2008, end: 2009
  51. TRAMADOL [Suspect]
     Active Substance: TRAMADOL
     Dosage: 20 MG,  UNK
     Route: 065
     Dates: start: 20110725
  52. TRAMADOL [Suspect]
     Active Substance: TRAMADOL
     Dosage: 1 DOSAGE FORM,  UNK
     Route: 065
     Dates: start: 20110725
  53. TRAMADOL [Suspect]
     Active Substance: TRAMADOL
     Dosage: 8 MG,  UNK
     Route: 065
     Dates: start: 20110725
  54. TRAMADOL [Suspect]
     Active Substance: TRAMADOL
     Dosage: 4 DOSAGE FORM,  UNK
     Route: 048
  55. MIRTAZAPINE [Suspect]
     Active Substance: MIRTAZAPINE
     Indication: Depression
     Dosage: 30 MG, ONCE PER DAY
     Route: 048
     Dates: start: 20101007, end: 20101012
  56. MIRTAZAPINE [Suspect]
     Active Substance: MIRTAZAPINE
     Indication: Psychotic disorder
     Dosage: 30 MG, ONCE PER DAY (UNSURE)
     Route: 048
     Dates: start: 20100923, end: 20101108
  57. MIRTAZAPINE [Suspect]
     Active Substance: MIRTAZAPINE
     Dosage: 15 MG, 2 TIMES PER DAY
     Dates: start: 20101007, end: 20101012
  58. MIRTAZAPINE [Suspect]
     Active Substance: MIRTAZAPINE
     Dosage: 30 MG, ONCE PER DAY
     Route: 048
  59. MIRTAZAPINE [Suspect]
     Active Substance: MIRTAZAPINE
     Dosage: 30 MG, ONCE PER DAY
     Route: 048
     Dates: start: 20110224, end: 20110506
  60. MIRTAZAPINE [Suspect]
     Active Substance: MIRTAZAPINE
     Dosage: 15 MG,  UNK (30MG IN THE DAY AND 15MG AT NIGHT)
     Route: 065
     Dates: start: 20110224, end: 20110506
  61. MIRTAZAPINE [Suspect]
     Active Substance: MIRTAZAPINE
     Dosage: UNK,  UNK
     Dates: start: 20110224, end: 20110506
  62. MIRTAZAPINE [Suspect]
     Active Substance: MIRTAZAPINE
     Dosage: 15 MG, 2 TIMES PER DAY
     Route: 048
     Dates: start: 20100923, end: 20101108
  63. CLONAZEPAM [Suspect]
     Active Substance: CLONAZEPAM
     Indication: Sedation
     Dosage: UNK, UNK (UNSURE)
     Route: 048
     Dates: start: 20110224, end: 20110410
  64. CLONAZEPAM [Suspect]
     Active Substance: CLONAZEPAM
     Dosage: UNK, UNK (UNSURE)
     Route: 048
     Dates: end: 20110410
  65. PAROXETINE HYDROCHLORIDE [Suspect]
     Active Substance: PAROXETINE HYDROCHLORIDE
     Indication: Product used for unknown indication
     Dosage: 20 MG, 3 TIMES PER DAY (NTERRUPTED)
     Route: 048
     Dates: start: 19990801, end: 201105
  66. PAROXETINE HYDROCHLORIDE [Suspect]
     Active Substance: PAROXETINE HYDROCHLORIDE
     Indication: Depression
     Dosage: UNK,  UNK
     Route: 048
     Dates: start: 1999
  67. PAROXETINE HYDROCHLORIDE [Suspect]
     Active Substance: PAROXETINE HYDROCHLORIDE
     Dosage: 60 MG, ONCE PER DAY (20 MG, THREE TIMES PER DAY)
     Route: 048
     Dates: start: 19990801, end: 201105
  68. PAROXETINE HYDROCHLORIDE [Suspect]
     Active Substance: PAROXETINE HYDROCHLORIDE
     Dosage: UNK,  UNK
     Route: 048
     Dates: start: 201012
  69. PAROXETINE HYDROCHLORIDE [Suspect]
     Active Substance: PAROXETINE HYDROCHLORIDE
     Dosage: 40 MG, ONCE PER DAY
     Route: 048
  70. PAROXETINE HYDROCHLORIDE [Suspect]
     Active Substance: PAROXETINE HYDROCHLORIDE
     Dosage: UNK,  UNK (INTERRUPTED)
     Route: 048
     Dates: start: 201105, end: 20110706
  71. PAROXETINE HYDROCHLORIDE [Suspect]
     Active Substance: PAROXETINE HYDROCHLORIDE
     Dosage: 20 MG, 3 TIMES PER DAY
     Route: 048
     Dates: start: 2011, end: 201105
  72. PAROXETINE HYDROCHLORIDE [Suspect]
     Active Substance: PAROXETINE HYDROCHLORIDE
     Dosage: 1 DOSAGE FORM, ONCE PER DAY, INTERRUPTED
     Route: 048
     Dates: start: 200812, end: 20101210
  73. PAROXETINE HYDROCHLORIDE [Suspect]
     Active Substance: PAROXETINE HYDROCHLORIDE
     Dosage: 60 MG, ONCE PER DAY, INTERRUPTED
     Route: 048
     Dates: start: 1997, end: 201105
  74. PAROXETINE HYDROCHLORIDE [Suspect]
     Active Substance: PAROXETINE HYDROCHLORIDE
     Dosage: 20 MG,  UNK (INTERRUPTED)
     Route: 048
     Dates: start: 1997
  75. PAROXETINE HYDROCHLORIDE [Suspect]
     Active Substance: PAROXETINE HYDROCHLORIDE
     Dosage: 40 MG,UNK (20 MG (2 PER DAY))
     Dates: start: 201105, end: 20110706
  76. PAROXETINE HYDROCHLORIDE [Suspect]
     Active Substance: PAROXETINE HYDROCHLORIDE
     Dosage: 180 MG,  UNK
     Dates: start: 19990801, end: 201105
  77. PAROXETINE HYDROCHLORIDE [Suspect]
     Active Substance: PAROXETINE HYDROCHLORIDE
     Dosage: 20 MG, ONCE PER DAY (20 MG BID)
     Route: 048
     Dates: start: 2011, end: 20110706
  78. PAROXETINE HYDROCHLORIDE [Suspect]
     Active Substance: PAROXETINE HYDROCHLORIDE
     Dosage: 60 MG, ONCE PER DAY
     Route: 048
     Dates: start: 1999, end: 201105
  79. CODEINE PHOSPHATE [Suspect]
     Active Substance: CODEINE PHOSPHATE
     Indication: Analgesic therapy
     Dosage: UNK,  UNK,
     Route: 048
     Dates: start: 2008, end: 2008
  80. CODEINE PHOSPHATE [Suspect]
     Active Substance: CODEINE PHOSPHATE
     Indication: Serotonin syndrome
     Dosage: 15-30 MG
     Route: 048
     Dates: start: 20110615, end: 20110723
  81. CODEINE PHOSPHATE [Suspect]
     Active Substance: CODEINE PHOSPHATE
     Dosage: 30 MG, 4 TIMES PER DAY
     Route: 048
     Dates: start: 2002, end: 2002
  82. CODEINE PHOSPHATE [Suspect]
     Active Substance: CODEINE PHOSPHATE
     Dosage: 30 MG, 4 TIMES PER DAY
     Route: 048
     Dates: start: 2008, end: 2008
  83. CODEINE PHOSPHATE [Suspect]
     Active Substance: CODEINE PHOSPHATE
     Dosage: 30 MG, 4 TIMES PER DAY
     Route: 048
     Dates: start: 20110615, end: 20110723
  84. CODEINE PHOSPHATE [Suspect]
     Active Substance: CODEINE PHOSPHATE
     Dosage: UNK,  UNK
     Route: 048
     Dates: start: 20110224, end: 20110410
  85. CODEINE PHOSPHATE [Suspect]
     Active Substance: CODEINE PHOSPHATE
     Dosage: UNK,  UNK
     Dates: start: 20110224, end: 20110410
  86. CODEINE PHOSPHATE [Suspect]
     Active Substance: CODEINE PHOSPHATE
     Dosage: UNK, UNK (EVERY 24 HOURS) (15-30 MG)
     Route: 048
     Dates: start: 20110615, end: 20110723
  87. CODEINE PHOSPHATE [Suspect]
     Active Substance: CODEINE PHOSPHATE
     Dosage: 30 MG, 4 TIMES PER DAY
     Route: 065
     Dates: start: 2008
  88. CODEINE PHOSPHATE [Suspect]
     Active Substance: CODEINE PHOSPHATE
     Dosage: 30 MG, 4 TIMES PER DAY
     Route: 065
     Dates: start: 2002
  89. CODEINE PHOSPHATE [Suspect]
     Active Substance: CODEINE PHOSPHATE
     Dosage: UNK,  UNK,
     Route: 048
     Dates: start: 2002, end: 2002
  90. QUETIAPINE FUMARATE [Suspect]
     Active Substance: QUETIAPINE FUMARATE
     Indication: Psychotic disorder
     Dosage: 300 MG, UNK
     Route: 048
     Dates: start: 20110224, end: 20110506
  91. QUETIAPINE FUMARATE [Suspect]
     Active Substance: QUETIAPINE FUMARATE
     Dosage: UNK,  UNK
  92. QUETIAPINE FUMARATE [Suspect]
     Active Substance: QUETIAPINE FUMARATE
     Dosage: UNK,  UNK
     Route: 048
     Dates: start: 19990801, end: 20110706
  93. OMEPRAZOLE [Suspect]
     Active Substance: OMEPRAZOLE
     Indication: Dyspepsia
     Dosage: 20 MG, ONCE PER DAY (Q24H)
     Route: 048
     Dates: start: 20110525
  94. OMEPRAZOLE [Suspect]
     Active Substance: OMEPRAZOLE
     Dosage: 20 MG, ONCE PER DAY
     Route: 048
  95. DOMPERIDONE [Suspect]
     Active Substance: DOMPERIDONE
     Indication: Product used for unknown indication
     Dosage: UNK, UNK
     Route: 065
  96. DOMPERIDONE [Suspect]
     Active Substance: DOMPERIDONE
     Dosage: UNK,  UNK
     Route: 065
  97. DOMPERIDONE [Suspect]
     Active Substance: DOMPERIDONE
     Dosage: UNK,  UNK
     Route: 048
     Dates: start: 20100923, end: 20101108
  98. DOMPERIDONE [Suspect]
     Active Substance: DOMPERIDONE
     Dosage: UNK,UNK
  99. AMITRIPTYLINE HYDROCHLORIDE [Suspect]
     Active Substance: AMITRIPTYLINE HYDROCHLORIDE
     Indication: Muscle spasms
     Dosage: 25 MG, ONCE PER DAY (25 MG AT NIGHT)
     Route: 065
     Dates: start: 20110810
  100. AMITRIPTYLINE HYDROCHLORIDE [Suspect]
     Active Substance: AMITRIPTYLINE HYDROCHLORIDE
     Indication: Serotonin syndrome
     Dosage: UNK,  UNK
  101. AMITRIPTYLINE HYDROCHLORIDE [Suspect]
     Active Substance: AMITRIPTYLINE HYDROCHLORIDE
     Indication: Drug withdrawal syndrome
     Dosage: UNK,  UNK
  102. AMITRIPTYLINE HYDROCHLORIDE [Suspect]
     Active Substance: AMITRIPTYLINE HYDROCHLORIDE
     Indication: Neuralgia
     Dosage: UNK,  UNK (AT NIGHT)
  103. AMITRIPTYLINE HYDROCHLORIDE [Suspect]
     Active Substance: AMITRIPTYLINE HYDROCHLORIDE
     Indication: Sedation
     Dosage: UNK,  UNK (AT NIGHT)
  104. AMITRIPTYLINE HYDROCHLORIDE [Suspect]
     Active Substance: AMITRIPTYLINE HYDROCHLORIDE
     Dosage: UNK,UNK
  105. AMITRIPTYLINE HYDROCHLORIDE [Suspect]
     Active Substance: AMITRIPTYLINE HYDROCHLORIDE
     Dosage: UNK,UNK
  106. PHOSPHORUS [Suspect]
     Active Substance: PHOSPHORUS
     Indication: Product used for unknown indication
     Dosage: UNK,  UNK
     Route: 065
  107. PHOSPHORUS [Suspect]
     Active Substance: PHOSPHORUS
     Dosage: UNK,UNK
     Route: 065
  108. QUETIAPINE [Suspect]
     Active Substance: QUETIAPINE
     Indication: Psychotic disorder
     Dosage: 300 MG,UNK
     Route: 048
     Dates: start: 20110224, end: 20110506
  109. QUETIAPINE [Suspect]
     Active Substance: QUETIAPINE
     Dosage: UNK,  UNK
     Route: 048
     Dates: start: 19990801, end: 20110706
  110. TRAMADOL HYDROCHLORIDE [Suspect]
     Active Substance: TRAMADOL HYDROCHLORIDE
     Indication: Analgesic therapy
     Dosage: UNK,  UNK
     Route: 044
     Dates: start: 20081208, end: 20101210
  111. TRAMADOL HYDROCHLORIDE [Suspect]
     Active Substance: TRAMADOL HYDROCHLORIDE
     Indication: Neck pain
     Dosage: 5 MG,  UNK
     Route: 044
     Dates: start: 1995, end: 1996
  112. TRAMADOL HYDROCHLORIDE [Suspect]
     Active Substance: TRAMADOL HYDROCHLORIDE
     Indication: Back pain
     Dosage: UNK,  UNK (UNK, UNK (4 UNK, QD)) (4 CYCLICAL QD) (UNK)
     Route: 048
     Dates: start: 20080722, end: 2009
  113. TRAMADOL HYDROCHLORIDE [Suspect]
     Active Substance: TRAMADOL HYDROCHLORIDE
     Dosage: UNK,  UNK (UNSPECIFIED, 50-100, 4 CYCLICAL) (UNK, UNK (4 OT, QD))
     Route: 048
     Dates: start: 20080722
  114. TRAMADOL HYDROCHLORIDE [Suspect]
     Active Substance: TRAMADOL HYDROCHLORIDE
     Dosage: 20 MG, UNK (20 MG, UNK)
     Route: 065
     Dates: start: 20110725
  115. TRAMADOL HYDROCHLORIDE [Suspect]
     Active Substance: TRAMADOL HYDROCHLORIDE
     Dosage: 1 DOSAGE FORM, UNK
     Route: 065
     Dates: start: 20110725
  116. TRAMADOL HYDROCHLORIDE [Suspect]
     Active Substance: TRAMADOL HYDROCHLORIDE
     Dosage: 4 DOSAGE FORM, UNK
     Route: 048
  117. TRAMADOL HYDROCHLORIDE [Suspect]
     Active Substance: TRAMADOL HYDROCHLORIDE
     Dosage: 4 DOSAGE FORM, UNK
     Route: 048
  118. TRAMADOL HYDROCHLORIDE [Suspect]
     Active Substance: TRAMADOL HYDROCHLORIDE
     Dosage: 4 MG, ONCE PER DAY (4 MG, ONCE PER DAY( (50-100 MG QD))
     Route: 048
     Dates: start: 20081201, end: 20101201
  119. TRAMADOL HYDROCHLORIDE [Suspect]
     Active Substance: TRAMADOL HYDROCHLORIDE
     Dosage: UNK,  UNK (DISCONTINUED AFTER 4 OR 5 DAYS)
     Route: 048
     Dates: start: 20081201, end: 20101210
  120. TRAMADOL HYDROCHLORIDE [Suspect]
     Active Substance: TRAMADOL HYDROCHLORIDE
     Dosage: 8 MG, UNK
     Route: 065
     Dates: start: 20110725
  121. TRAMADOL HYDROCHLORIDE [Suspect]
     Active Substance: TRAMADOL HYDROCHLORIDE
     Dosage: UNK,  UNK
     Route: 048
     Dates: start: 20081201, end: 20101201
  122. TRAMADOL HYDROCHLORIDE [Suspect]
     Active Substance: TRAMADOL HYDROCHLORIDE
     Dosage: 100 MG, ONCE PER DAY
     Route: 048
     Dates: start: 20081201, end: 20101210

REACTIONS (105)
  - Dyspnoea [Unknown]
  - Mania [Unknown]
  - Tremor [Not Recovered/Not Resolved]
  - Feeling jittery [Unknown]
  - Headache [Unknown]
  - Sleep disorder [Unknown]
  - Anxiety [Unknown]
  - Agitation [Unknown]
  - Urinary retention [Unknown]
  - Visual impairment [Unknown]
  - Blood sodium decreased [Unknown]
  - Asthenia [Unknown]
  - Disturbance in attention [Unknown]
  - Feeling of despair [Unknown]
  - Emotional disorder [Unknown]
  - Restlessness [Unknown]
  - Depression [Unknown]
  - Decreased appetite [Unknown]
  - Derealisation [Not Recovered/Not Resolved]
  - Vomiting [Unknown]
  - Hyperhidrosis [Unknown]
  - Delirium [Unknown]
  - H1N1 influenza [Unknown]
  - Pyrexia [Unknown]
  - Disorientation [Not Recovered/Not Resolved]
  - Muscle spasms [Not Recovered/Not Resolved]
  - Skin discolouration [Not Recovered/Not Resolved]
  - Arthralgia [Unknown]
  - Serotonin syndrome [Not Recovered/Not Resolved]
  - Paraesthesia [Unknown]
  - Menstrual disorder [Unknown]
  - Dissociation [Not Recovered/Not Resolved]
  - Hallucinations, mixed [Unknown]
  - Dyskinesia [Unknown]
  - Pruritus [Unknown]
  - Psychotic disorder [Recovered/Resolved]
  - Parosmia [Unknown]
  - Tachycardia [Unknown]
  - Diarrhoea [Unknown]
  - Incontinence [Not Recovered/Not Resolved]
  - Swelling face [Unknown]
  - Vision blurred [Unknown]
  - Hypoaesthesia [Not Recovered/Not Resolved]
  - Gastric pH decreased [Unknown]
  - Dizziness [Unknown]
  - Heart rate increased [Unknown]
  - Cyanosis [Unknown]
  - Sensory loss [Unknown]
  - Balance disorder [Unknown]
  - Drooling [Unknown]
  - Cogwheel rigidity [Unknown]
  - Tinnitus [Unknown]
  - Eye pain [Unknown]
  - Gait disturbance [Unknown]
  - Schizophrenia [Unknown]
  - Neuroleptic malignant syndrome [Unknown]
  - Mydriasis [Unknown]
  - Pallor [Unknown]
  - Fatigue [Not Recovered/Not Resolved]
  - Illness [Unknown]
  - Speech disorder [Unknown]
  - Mood swings [Unknown]
  - Paralysis [Unknown]
  - Swollen tongue [Unknown]
  - Muscle rigidity [Unknown]
  - Contusion [Not Recovered/Not Resolved]
  - Nightmare [Unknown]
  - Dystonia [Unknown]
  - Musculoskeletal stiffness [Not Recovered/Not Resolved]
  - Hypoaesthesia oral [Unknown]
  - Seizure [Unknown]
  - Toxicity to various agents [Unknown]
  - Aphasia [Not Recovered/Not Resolved]
  - Drug withdrawal syndrome [Unknown]
  - Drug interaction [Unknown]
  - Premature labour [Unknown]
  - Suicidal ideation [Not Recovered/Not Resolved]
  - Muscle disorder [Unknown]
  - Muscle spasms [Not Recovered/Not Resolved]
  - Exposure during pregnancy [Unknown]
  - Drug ineffective [Unknown]
  - Limb injury [Unknown]
  - Somnolence [Not Recovered/Not Resolved]
  - Paraesthesia [Unknown]
  - Fatigue [Unknown]
  - Off label use [Unknown]
  - Restless legs syndrome [Not Recovered/Not Resolved]
  - Therapeutic product ineffective [Unknown]
  - Feeling jittery [Unknown]
  - Cyanosis [Unknown]
  - Eye pain [Unknown]
  - Dissociation [Not Recovered/Not Resolved]
  - Anxiety [Unknown]
  - Depersonalisation/derealisation disorder [Not Recovered/Not Resolved]
  - Confusional state [Not Recovered/Not Resolved]
  - Restlessness [Not Recovered/Not Resolved]
  - Paralysis [Unknown]
  - Contusion [Unknown]
  - Somnolence [Unknown]
  - Maternal exposure during pregnancy [Unknown]
  - Muscle spasms [Unknown]
  - Drug interaction [Unknown]
  - Hallucination [Unknown]
  - Feeling of body temperature change [Unknown]
  - Contusion [Unknown]

NARRATIVE: CASE EVENT DATE: 20030101
